FAERS Safety Report 23699701 (Version 2)
Quarter: 2024Q2

REPORT INFORMATION
  Report Type: Report from Study
  Country: US (occurrence: US)
  Receive Date: 20240403
  Receipt Date: 20240408
  Transmission Date: 20240716
  Serious: Yes (Hospitalization, Other)
  Sender: FDA-Public Use
  Company Number: US-ABBVIE-5700443

PATIENT
  Age: 53 Year
  Sex: Female

DRUGS (1)
  1. HUMIRA [Suspect]
     Active Substance: ADALIMUMAB
     Indication: Crohn^s disease
     Dosage: CITRATE FREE FORM STRENGTH: 40 MG
     Route: 058

REACTIONS (8)
  - Hepatic cirrhosis [Unknown]
  - Ammonia increased [Not Recovered/Not Resolved]
  - Colostomy [Unknown]
  - Haemorrhage [Unknown]
  - Platelet count decreased [Unknown]
  - Lethargy [Unknown]
  - Inflammation [Unknown]
  - Pneumonia [Unknown]

NARRATIVE: CASE EVENT DATE: 20240321
